FAERS Safety Report 19738485 (Version 2)
Quarter: 2021Q4

REPORT INFORMATION
  Report Type: Spontaneous
  Country: JP (occurrence: JP)
  Receive Date: 20210824
  Receipt Date: 20211012
  Transmission Date: 20220304
  Serious: Yes (Hospitalization, Other)
  Sender: FDA-Public Use
  Company Number: JP-AMGEN-JPNSP2021109119

PATIENT
  Sex: Female

DRUGS (4)
  1. BLINCYTO [Suspect]
     Active Substance: BLINATUMOMAB
     Indication: Acute lymphocytic leukaemia recurrent
     Dosage: 9 MICROGRAM, QD
     Route: 041
     Dates: start: 20210630, end: 20210706
  2. BLINCYTO [Suspect]
     Active Substance: BLINATUMOMAB
     Dosage: 28 MICROGRAM, QD
     Route: 041
     Dates: start: 20210707, end: 20210728
  3. BLINCYTO [Suspect]
     Active Substance: BLINATUMOMAB
     Dosage: 28 MICROGRAM, QD
     Route: 041
     Dates: start: 20210812, end: 202108
  4. PREDONINE [Concomitant]
     Active Substance: PREDNISOLONE
     Indication: Evans syndrome
     Dosage: 5 MILLIGRAM, QD

REACTIONS (4)
  - Acute lymphocytic leukaemia recurrent [Not Recovered/Not Resolved]
  - Therapeutic product effect decreased [Unknown]
  - B-lymphocyte count decreased [Unknown]
  - Pyrexia [Recovered/Resolved]

NARRATIVE: CASE EVENT DATE: 20210701
